FAERS Safety Report 15120696 (Version 1)
Quarter: 2018Q3

REPORT INFORMATION
  Report Type: Spontaneous
  Country: US (occurrence: US)
  Receive Date: 20180709
  Receipt Date: 20180709
  Transmission Date: 20181010
  Serious: Yes (Other)
  Sender: FDA-Public Use
  Company Number: US-SA-2018SA175264

PATIENT
  Age: 58 Year
  Sex: Female
  Weight: 108.86 kg

DRUGS (3)
  1. TAXOTERE [Suspect]
     Active Substance: DOCETAXEL
     Indication: BREAST CANCER
     Dosage: 164 UNK
     Dates: start: 20150106, end: 20150106
  2. PARAPLATIN [Concomitant]
     Active Substance: CARBOPLATIN
  3. TAXOTERE [Suspect]
     Active Substance: DOCETAXEL
     Dosage: 164 MG, Q3W
     Dates: start: 20150407, end: 20150407

REACTIONS (1)
  - Alopecia [Recovering/Resolving]
